FAERS Safety Report 7479003-9 (Version None)
Quarter: 2011Q2

REPORT INFORMATION
  Report Type: 
  Country: None (occurrence: None)
  Receive Date: 20110513
  Receipt Date: 20110503
  Transmission Date: 20111010
  Serious: Yes (Death, Other)
  Sender: FDA-Public Use
  Company Number: DE-JNJFOC-20110500848

PATIENT
  Age: 85 Year
  Sex: Female

DRUGS (20)
  1. RISPERDAL [Suspect]
     Indication: PRODUCT USED FOR UNKNOWN INDICATION
     Route: 048
     Dates: end: 20070925
  2. MELNEURIN [Interacting]
     Indication: PRODUCT USED FOR UNKNOWN INDICATION
     Route: 048
     Dates: end: 20070925
  3. DOMINAL [Suspect]
     Route: 048
     Dates: start: 20070806, end: 20070925
  4. IDEOS [Concomitant]
     Route: 048
     Dates: end: 20070925
  5. ACC 200 [Concomitant]
     Route: 048
  6. CEFTRIAXONE [Concomitant]
     Route: 042
  7. MELNEURIN [Interacting]
     Route: 048
     Dates: end: 20070925
  8. ACETAMINOPHEN [Concomitant]
     Route: 048
  9. BAMBEC [Concomitant]
     Route: 048
     Dates: end: 20070925
  10. ACETAMINOPHEN [Concomitant]
     Route: 048
  11. RISPERDAL [Suspect]
     Route: 048
     Dates: end: 20070925
  12. DOMINAL [Suspect]
     Route: 048
     Dates: start: 20070806, end: 20070925
  13. ASPIRIN [Concomitant]
     Route: 048
     Dates: end: 20070925
  14. DIGIMERCK [Concomitant]
     Route: 048
     Dates: end: 20070925
  15. EMBOLEX [Concomitant]
     Route: 058
  16. DOMINAL [Suspect]
     Indication: PRODUCT USED FOR UNKNOWN INDICATION
     Route: 048
     Dates: start: 20070806, end: 20070925
  17. COVERSUM [Concomitant]
     Route: 048
     Dates: end: 20070925
  18. FURORESE [Concomitant]
     Route: 048
     Dates: end: 20070925
  19. THEOPHYLLINE [Concomitant]
     Route: 048
     Dates: end: 20070925
  20. PREDNISOLONE [Concomitant]
     Route: 048

REACTIONS (2)
  - DRUG INTERACTION [None]
  - PNEUMONIA [None]
